FAERS Safety Report 6843809-7 (Version None)
Quarter: 2010Q3

REPORT INFORMATION
  Report Type: 
  Country: None (occurrence: None)
  Receive Date: 20100715
  Receipt Date: 20100701
  Transmission Date: 20110219
  Serious: Yes (Hospitalization)
  Sender: FDA-Public Use
  Company Number: PHHY2010JP43408

PATIENT
  Age: 60 Year
  Sex: Male

DRUGS (6)
  1. DIOVAN HCT [Suspect]
     Indication: HYPERTENSION
     Dosage: 1DF
     Route: 048
     Dates: start: 20090909, end: 20100628
  2. ATELEC [Suspect]
     Dosage: 10 MG
     Route: 048
  3. HYPADIL [Suspect]
     Dosage: 3 MG
     Route: 048
  4. LIVALO KOWA [Concomitant]
     Dosage: 2 MG
     Route: 048
  5. ZYRTEC [Concomitant]
     Dosage: 10 MG
     Route: 048
  6. MYSLEE [Concomitant]
     Dosage: 10 MG
     Route: 048

REACTIONS (1)
  - CEREBRAL INFARCTION [None]
